FAERS Safety Report 5886842-4 (Version None)
Quarter: 2008Q3

REPORT INFORMATION
  Report Type: 
  Country: None (occurrence: None)
  Receive Date: 20080917
  Receipt Date: 20080908
  Transmission Date: 20090109
  Serious: Yes (Other)
  Sender: FDA-Public Use
  Company Number: JP-SANOFI-SYNTHELABO-A01200811120

PATIENT
  Sex: Male

DRUGS (2)
  1. ALCOHOL [Concomitant]
     Dosage: UNK
     Route: 048
  2. MYSLEE [Suspect]
     Indication: DRUG USE FOR UNKNOWN INDICATION
     Dosage: UNK
     Route: 048

REACTIONS (2)
  - ACCIDENT [None]
  - LOSS OF CONSCIOUSNESS [None]
